FAERS Safety Report 12184060 (Version 2)
Quarter: 2016Q3

REPORT INFORMATION
  Report Type: Report from Study
  Country: BR (occurrence: BR)
  Receive Date: 20160316
  Receipt Date: 20160831
  Transmission Date: 20161109
  Serious: Yes (Other)
  Sender: FDA-Public Use
  Company Number: BR-JNJFOC-20160312205

PATIENT
  Age: 61 Year
  Sex: Female

DRUGS (8)
  1. SIMPONI [Suspect]
     Active Substance: GOLIMUMAB
     Indication: RHEUMATOID ARTHRITIS
     Route: 058
     Dates: start: 20150514
  2. OMEPRAZOLE. [Concomitant]
     Active Substance: OMEPRAZOLE
  3. NIMESULIDA [Concomitant]
     Active Substance: NIMESULIDE
  4. CAPTOPRIL. [Concomitant]
     Active Substance: CAPTOPRIL
  5. PREDNISONA [Concomitant]
     Active Substance: PREDNISONE
  6. AMPICILLIN [Concomitant]
     Active Substance: AMPICILLIN
  7. HIDROCLOROTIAZIDA [Concomitant]
     Active Substance: HYDROCHLOROTHIAZIDE
  8. FOLIC ACID. [Concomitant]
     Active Substance: FOLIC ACID

REACTIONS (3)
  - Drug dose omission [Unknown]
  - Chikungunya virus infection [Unknown]
  - Influenza [Unknown]

NARRATIVE: CASE EVENT DATE: 201604
